FAERS Safety Report 5015168-6 (Version None)
Quarter: 2006Q2

REPORT INFORMATION
  Report Type: 
  Country: None (occurrence: None)
  Receive Date: 20060530
  Receipt Date: 20060515
  Transmission Date: 20061013
  Serious: Yes (Other)
  Sender: FDA-Public Use
  Company Number: 14092

PATIENT
  Age: 23 Year
  Sex: Male

DRUGS (5)
  1. CISPLATIN [Suspect]
     Indication: NONGERMINOMATOUS GERM CELL TUMOUR OF THE CNS
     Dosage: 100 MG/M2 PER_CYCLE
  2. BLEOMYCIN [Suspect]
     Indication: NONGERMINOMATOUS GERM CELL TUMOUR OF THE CNS
     Dosage: 90 MG PER_CYCLE
  3. ETOPOSIDE [Suspect]
     Indication: NONGERMINOMATOUS GERM CELL TUMOUR OF THE CNS
     Dosage: 500 MG/M2 PER_CYCLE
  4. DEXAMETHASONE TAB [Concomitant]
  5. ONDANSETRON HCL [Concomitant]

REACTIONS (1)
  - DEEP VEIN THROMBOSIS [None]
